FAERS Safety Report 8270013-0 (Version None)
Quarter: 2012Q2

REPORT INFORMATION
  Report Type: 
  Country: None (occurrence: None)
  Receive Date: 20120410
  Receipt Date: 20120409
  Transmission Date: 20120825
  Serious: No
  Sender: FDA-Public Use
  Company Number: US-PFIZER INC-2012084455

PATIENT
  Sex: Male
  Weight: 85.261 kg

DRUGS (1)
  1. LIPITOR [Suspect]
     Indication: HYPERCHOLESTEROLAEMIA
     Dosage: 20 MG, DAILY
     Dates: start: 20110101

REACTIONS (2)
  - HIGH DENSITY LIPOPROTEIN DECREASED [None]
  - TINNITUS [None]
